FAERS Safety Report 19597709 (Version 2)
Quarter: 2021Q3

REPORT INFORMATION
  Report Type: Spontaneous
  Country: FI (occurrence: FI)
  Receive Date: 20210723
  Receipt Date: 20210924
  Transmission Date: 20211014
  Serious: Yes (Other)
  Sender: FDA-Public Use
  Company Number: FI-NOVOPROD-829875

PATIENT
  Age: 66 Year
  Sex: Male
  Weight: 125 kg

DRUGS (1)
  1. OZEMPIC [Suspect]
     Active Substance: SEMAGLUTIDE
     Indication: TYPE 2 DIABETES MELLITUS
     Dosage: 1 MG, QW
     Route: 065
     Dates: start: 20191014

REACTIONS (2)
  - Pancreatic neoplasm [Recovered/Resolved with Sequelae]
  - Pancreatic fistula [Unknown]

NARRATIVE: CASE EVENT DATE: 202106
